FAERS Safety Report 12187514 (Version 1)
Quarter: 2016Q1

REPORT INFORMATION
  Report Type: Spontaneous
  Country: US (occurrence: None)
  Receive Date: 20160316
  Receipt Date: 20160316
  Transmission Date: 20160526
  Serious: No
  Sender: FDA-Public Use
  Company Number: None

PATIENT
  Age: 29 Year
  Sex: Male
  Weight: 136.08 kg

DRUGS (2)
  1. TERBINAFINE HCL 250 MG [Suspect]
     Active Substance: TERBINAFINE HYDROCHLORIDE
     Indication: ONYCHOMYCOSIS
     Dosage: 1 PILL ONCE DAILY TAKEN BY MOUTH?
     Route: 048
     Dates: start: 20150901, end: 20151105
  2. HERBAL LIFE [Concomitant]

REACTIONS (5)
  - Insomnia [None]
  - Decreased appetite [None]
  - Depression [None]
  - Anxiety [None]
  - Ageusia [None]

NARRATIVE: CASE EVENT DATE: 20151105
